FAERS Safety Report 5919742-1 (Version None)
Quarter: 2008Q4

REPORT INFORMATION
  Report Type: 
  Country: None (occurrence: None)
  Receive Date: 20081015
  Receipt Date: 20081013
  Transmission Date: 20090506
  Serious: Yes (Hospitalization, Other)
  Sender: FDA-Public Use
  Company Number: SG-ROXANE LABORATORIES, INC.-2008-RO-00121RO

PATIENT
  Age: 56 Year
  Sex: Female

DRUGS (11)
  1. AZATHIOPRINE [Suspect]
     Indication: IMMUNOSUPPRESSANT DRUG THERAPY
  2. CYCLOSPORINE [Suspect]
     Indication: IMMUNOSUPPRESSANT DRUG THERAPY
  3. RITUXIMAB [Concomitant]
  4. FLUID CHALLENGES [Concomitant]
     Indication: GASTROINTESTINAL HAEMORRHAGE
  5. FLUID CHALLENGES [Concomitant]
     Indication: HYPOTENSION
  6. BLOOD PRODUCTS [Concomitant]
     Indication: GASTROINTESTINAL HAEMORRHAGE
  7. BLOOD PRODUCTS [Concomitant]
     Indication: HYPOTENSION
  8. CYCLOPHOSPHAMIDE [Concomitant]
     Indication: DIFFUSE LARGE B-CELL LYMPHOMA
  9. DOXORUBICIN HCL [Concomitant]
     Indication: DIFFUSE LARGE B-CELL LYMPHOMA
  10. VINCRISTINE [Concomitant]
     Indication: DIFFUSE LARGE B-CELL LYMPHOMA
  11. PREDNISONE [Concomitant]
     Indication: DIFFUSE LARGE B-CELL LYMPHOMA

REACTIONS (5)
  - ANOREXIA [None]
  - EPSTEIN-BARR VIRUS ASSOCIATED LYMPHOPROLIFERATIVE DISORDER [None]
  - EPSTEIN-BARR VIRUS TEST POSITIVE [None]
  - GASTROINTESTINAL HAEMORRHAGE [None]
  - LARGE INTESTINAL ULCER [None]
